FAERS Safety Report 6830637-1 (Version None)
Quarter: 2010Q3

REPORT INFORMATION
  Report Type: 
  Country: None (occurrence: None)
  Receive Date: 20100706
  Receipt Date: 20100622
  Transmission Date: 20110219
  Serious: Yes (Death, Hospitalization, Other)
  Sender: FDA-Public Use
  Company Number: UTC-001171

PATIENT
  Age: 61 Year
  Sex: Female

DRUGS (17)
  1. TYVASO [Suspect]
     Indication: PULMONARY ARTERIAL HYPERTENSION
     Dosage: (3-9 BREATHS (18-54 MCG) PER DAY),INHALATION
     Route: 055
     Dates: start: 20100424
  2. ALLOPURINOL [Concomitant]
  3. AMBIEN [Concomitant]
  4. VIOKASE (PANCRELIPASE)(TABLETS) I [Concomitant]
  5. IMODIUM A-D (LOPERAMIDE HYDROCHLORIDE) (CAPSULES) [Concomitant]
  6. TYLENOL #3 (PANADEINE CO)(TABLETS) [Concomitant]
  7. SYNTHROID (LEVOTHYROXINE SODIUM) (TABLETS) [Concomitant]
  8. ZOLOFT [Concomitant]
  9. LYRICA (PREGABALIN) (CAPSULES) [Concomitant]
  10. CLONAZEPAM [Concomitant]
  11. METOPROLOL (METOPROLOL) (TABLETS) [Concomitant]
  12. ASPIRIN [Concomitant]
  13. VITAMIN D [Concomitant]
  14. THERAGRAN (THERAGRAN /00554301/)(CAPSULES) [Concomitant]
  15. CALCIUM CARBONATE (CALCIUM CARBONATE)(TABLETS) [Concomitant]
  16. PREDNISONE [Concomitant]
  17. BACID (LACTOBACILLUS ACIDOPHILUS) (CAPSULES) [Concomitant]

REACTIONS (5)
  - DISEASE PROGRESSION [None]
  - DYSPNOEA [None]
  - IMPAIRED HEALING [None]
  - SEPSIS [None]
  - SYSTEMIC LUPUS ERYTHEMATOSUS [None]
